FAERS Safety Report 17482171 (Version 17)
Quarter: 2022Q3

REPORT INFORMATION
  Report Type: Spontaneous
  Country: DE (occurrence: DE)
  Receive Date: 20200302
  Receipt Date: 20220630
  Transmission Date: 20221026
  Serious: Yes (Other)
  Sender: FDA-Public Use
  Company Number: DE-ROCHE-2351472

PATIENT
  Age: 37 Year
  Sex: Female
  Weight: 41.5 kg

DRUGS (20)
  1. ESTRADIOL [Suspect]
     Active Substance: ESTRADIOL
     Indication: Osteoporosis
     Dosage: 0.6 MG (TOGETHER WITH UTROGEST)
     Route: 065
  2. ESTRADIOL [Suspect]
     Active Substance: ESTRADIOL
     Dosage: TOGETHER WITH UTROGEST
     Route: 065
  3. CORTISONE [Suspect]
     Active Substance: CORTISONE
     Indication: Premedication
     Dosage: 300 MG (PRE-MEDICATION OF THE 4TH MAINTENANCE DOSE)
     Route: 042
     Dates: start: 20220404
  4. ESTRADIOL [Suspect]
     Active Substance: ESTRADIOL
     Indication: Osteoporosis
     Dosage: UNK (HORMONE SUPPLEMENTARY TREATMENT, TOGETHER WITH UTROGEST)
     Route: 065
     Dates: start: 20190812, end: 20190812
  5. ESTRADIOL [Suspect]
     Active Substance: ESTRADIOL
     Dosage: UNK, QD (HORMONE SUPPLEMENTARY TREATMENT, TOGETHER WITH UTROGEST)
     Route: 065
     Dates: start: 20190812, end: 20190812
  6. OCRELIZUMAB [Suspect]
     Active Substance: OCRELIZUMAB
     Indication: Relapsing multiple sclerosis
     Dosage: 300 MG
     Route: 042
     Dates: start: 20190701
  7. OCRELIZUMAB [Suspect]
     Active Substance: OCRELIZUMAB
     Indication: Secondary progressive multiple sclerosis
     Dosage: 300 MG
     Route: 042
     Dates: start: 20200106
  8. OCRELIZUMAB [Suspect]
     Active Substance: OCRELIZUMAB
     Dosage: 300 MG
     Route: 042
     Dates: start: 20200706
  9. OCRELIZUMAB [Suspect]
     Active Substance: OCRELIZUMAB
     Dosage: 300 MG
     Route: 042
     Dates: start: 20210313
  10. OCRELIZUMAB [Suspect]
     Active Substance: OCRELIZUMAB
     Dosage: 300 MG
     Route: 042
     Dates: start: 20210318
  11. OCRELIZUMAB [Suspect]
     Active Substance: OCRELIZUMAB
     Dosage: 3RD MAINTENANCE DOSE
     Route: 042
     Dates: start: 20210927
  12. PROGESTERONE [Suspect]
     Active Substance: PROGESTERONE
     Indication: Osteoporosis
     Dosage: 100 MG,QD (TOGETHER WITH ESTRADIOL)
     Route: 065
     Dates: end: 20190812
  13. PROGESTERONE [Suspect]
     Active Substance: PROGESTERONE
     Indication: Hormone replacement therapy
     Dosage: 100 MG, QD (TOGETHER WITH ESTRADIOL)
     Route: 065
  14. PROGESTERONE [Suspect]
     Active Substance: PROGESTERONE
     Dosage: 100 MG (HORMONE SUPPLEMENTARY TREATMENT, TOGETHER WITH GYNOKADIN AND TOGETHER WITH ESTRADIOL)
     Route: 065
     Dates: start: 20190812, end: 20190812
  15. TOLTERODINE [Concomitant]
     Active Substance: TOLTERODINE
     Indication: Product used for unknown indication
     Dosage: 2 MG, QD
     Route: 065
  16. FERROUS FUMARATE [Concomitant]
     Active Substance: FERROUS FUMARATE
     Indication: Product used for unknown indication
     Dosage: UNK
     Route: 065
  17. TOLTERODINE TARTRATE [Concomitant]
     Active Substance: TOLTERODINE TARTRATE
     Indication: Product used for unknown indication
     Dosage: 2 MG, QD
     Route: 065
  18. LEUCOVORIN [Concomitant]
     Active Substance: LEUCOVORIN
     Indication: Product used for unknown indication
     Dosage: UNK
     Route: 065
  19. FLUVOXAMINE [Concomitant]
     Active Substance: FLUVOXAMINE
     Indication: Product used for unknown indication
     Dosage: 25 MG, QD
     Route: 065
  20. CALCIUM [Concomitant]
     Active Substance: CALCIUM
     Indication: Product used for unknown indication
     Dosage: 1 DOSAGE FORM, QD (FORM: CHEWABLE TABLETS TOGETHER WITH VITAMIN D)
     Route: 065

REACTIONS (72)
  - Intentional self-injury [Not Recovered/Not Resolved]
  - Multiple sclerosis relapse [Not Recovered/Not Resolved]
  - Circulatory collapse [Recovered/Resolved]
  - Suicidal ideation [Recovered/Resolved]
  - Cardiovascular insufficiency [Not Recovered/Not Resolved]
  - Paraesthesia [Recovering/Resolving]
  - Limb discomfort [Recovered/Resolved]
  - Limb discomfort [Recovering/Resolving]
  - Fatigue [Recovered/Resolved]
  - Fatigue [Recovered/Resolved]
  - Fatigue [Recovered/Resolved]
  - Skin burning sensation [Recovered/Resolved]
  - Arthralgia [Not Recovered/Not Resolved]
  - Arthralgia [Not Recovered/Not Resolved]
  - Arthralgia [Recovered/Resolved]
  - Chest pain [Recovered/Resolved]
  - Muscular weakness [Not Recovered/Not Resolved]
  - Food poisoning [Recovered/Resolved]
  - Coordination abnormal [Not Recovered/Not Resolved]
  - Weight decreased [Recovered/Resolved]
  - Anxiety [Not Recovered/Not Resolved]
  - Salivary hypersecretion [Recovered/Resolved]
  - Blood pressure decreased [Recovered/Resolved]
  - Visual impairment [Recovered/Resolved]
  - Panic attack [Recovered/Resolved]
  - Nerve compression [Unknown]
  - Throat irritation [Recovered/Resolved]
  - Nasopharyngitis [Recovered/Resolved]
  - Myalgia [Not Recovered/Not Resolved]
  - Insomnia [Recovered/Resolved]
  - Nail bed inflammation [Recovered/Resolved]
  - Urinary incontinence [Not Recovered/Not Resolved]
  - Vision blurred [Recovered/Resolved]
  - Visual field defect [Recovered/Resolved]
  - Gait disturbance [Recovered/Resolved]
  - Musculoskeletal stiffness [Recovered/Resolved]
  - White blood cell count decreased [Recovering/Resolving]
  - White blood cell count decreased [Recovered/Resolved]
  - Psoriasis [Recovered/Resolved]
  - Mucosal dryness [Not Recovered/Not Resolved]
  - Back pain [Recovering/Resolving]
  - Oropharyngeal pain [Recovered/Resolved]
  - Constipation [Recovered/Resolved]
  - Pain in extremity [Recovered/Resolved]
  - Pain in extremity [Recovered/Resolved]
  - Anger [Not Recovered/Not Resolved]
  - B-lymphocyte count increased [Not Recovered/Not Resolved]
  - B-lymphocyte count increased [Recovered/Resolved]
  - Bacterial vulvovaginitis [Not Recovered/Not Resolved]
  - Pain in jaw [Not Recovered/Not Resolved]
  - Migraine [Recovered/Resolved]
  - Influenza [Recovered/Resolved]
  - Mood swings [Not Recovered/Not Resolved]
  - Toothache [Recovered/Resolved]
  - Hypoaesthesia [Recovered/Resolved]
  - Chills [Recovered/Resolved]
  - Pyrexia [Not Recovered/Not Resolved]
  - Dental prosthesis placement [Unknown]
  - Tendon pain [Not Recovered/Not Resolved]
  - Device failure [Not Recovered/Not Resolved]
  - Fluid retention [Recovering/Resolving]
  - Depression [Recovering/Resolving]
  - Depression [Recovering/Resolving]
  - Headache [Recovered/Resolved]
  - Headache [Recovered/Resolved]
  - Abdominal pain upper [Recovered/Resolved]
  - Pruritus [Not Recovered/Not Resolved]
  - Oedema [Unknown]
  - Weight increased [Not Recovered/Not Resolved]
  - Nausea [Not Recovered/Not Resolved]
  - Off label use [Unknown]
  - Drug ineffective [Unknown]

NARRATIVE: CASE EVENT DATE: 20190701
